FAERS Safety Report 12916220 (Version 1)
Quarter: 2016Q4

REPORT INFORMATION
  Report Type: Spontaneous
  Country: US (occurrence: US)
  Receive Date: 20161107
  Receipt Date: 20161107
  Transmission Date: 20170207
  Serious: No
  Sender: FDA-Public Use
  Company Number: US-BRISTOL-MYERS SQUIBB COMPANY-BMS-2016-087896

PATIENT
  Sex: Male

DRUGS (1)
  1. YERVOY [Suspect]
     Active Substance: IPILIMUMAB
     Indication: MALIGNANT MELANOMA
     Route: 042

REACTIONS (7)
  - Rash pruritic [Unknown]
  - Cheilitis [Unknown]
  - Headache [Unknown]
  - Stomatitis [Unknown]
  - Ear congestion [Unknown]
  - Oral pain [Unknown]
  - Nasal congestion [Unknown]
